FAERS Safety Report 7986143-4 (Version None)
Quarter: 2011Q4

REPORT INFORMATION
  Report Type: 
  Country: None (occurrence: None)
  Receive Date: 20111216
  Receipt Date: 20111208
  Transmission Date: 20120403
  Serious: Yes (Hospitalization)
  Sender: FDA-Public Use
  Company Number: FR-PFIZER INC-2011304557

PATIENT
  Age: 48 Year
  Sex: Male

DRUGS (4)
  1. REMICADE [Suspect]
     Indication: ANKYLOSING SPONDYLITIS
     Dosage: 0.0893 MG/KG (5MG/KG IN 8 WEEKS)
     Route: 042
     Dates: start: 20050909, end: 20110906
  2. MOBIC [Concomitant]
     Dosage: 7.5 MG, UNK
     Route: 048
  3. PANTOPRAZOLE SODIUM [Suspect]
     Dosage: 20 MG, UNK
     Route: 048
  4. TRAMADOL HCL [Concomitant]
     Indication: PAIN
     Dosage: 150 TO 900 MG ON REQUEST
     Route: 048

REACTIONS (4)
  - APHASIA [None]
  - AGITATION [None]
  - CONFUSIONAL STATE [None]
  - EPILEPSY [None]
